FAERS Safety Report 14088855 (Version 1)
Quarter: 2017Q4

REPORT INFORMATION
  Report Type: Spontaneous
  Country: US (occurrence: US)
  Receive Date: 20171014
  Receipt Date: 20171014
  Transmission Date: 20180321
  Serious: Yes (Other)
  Sender: FDA-Public Use
  Company Number: US-BEH-2017084237

PATIENT
  Age: 53 Year
  Sex: Female
  Weight: 78.5 kg

DRUGS (26)
  1. HIZENTRA [Suspect]
     Active Substance: HUMAN IMMUNOGLOBULIN G
     Dosage: UNK
     Route: 058
  2. EPINEPHRINE. [Concomitant]
     Active Substance: EPINEPHRINE
  3. DIPHENHYDRAMINE. [Concomitant]
     Active Substance: DIPHENHYDRAMINE
  4. MONTELUKAST [Concomitant]
     Active Substance: MONTELUKAST SODIUM
  5. FUROSEMIDE. [Concomitant]
     Active Substance: FUROSEMIDE
  6. ADVAIR HFA [Concomitant]
     Active Substance: FLUTICASONE PROPIONATE\SALMETEROL XINAFOATE
  7. LORATADINE. [Concomitant]
     Active Substance: LORATADINE
  8. HIZENTRA [Suspect]
     Active Substance: HUMAN IMMUNOGLOBULIN G
     Dosage: UNK
     Route: 058
  9. ACETAMINOPHEN. [Concomitant]
     Active Substance: ACETAMINOPHEN
  10. LOSARTAN. [Concomitant]
     Active Substance: LOSARTAN
  11. MELOXICAM. [Concomitant]
     Active Substance: MELOXICAM
  12. DOCUSATE SODIUM. [Concomitant]
     Active Substance: DOCUSATE SODIUM
  13. HIZENTRA [Suspect]
     Active Substance: HUMAN IMMUNOGLOBULIN G
     Dosage: UNK
     Route: 058
  14. LMX                                /00033401/ [Concomitant]
  15. LEVOTHYROXINE. [Concomitant]
     Active Substance: LEVOTHYROXINE
  16. TOPICORT                           /00028604/ [Concomitant]
     Active Substance: HYDROCORTISONE ACETATE
  17. PROAIR HFA [Concomitant]
     Active Substance: ALBUTEROL SULFATE
  18. CALCIUM +D3 [Concomitant]
     Active Substance: CALCIUM\CHOLECALCIFEROL
  19. TUSSIONEX                          /00004701/ [Concomitant]
     Active Substance: BROMHEXINE
  20. HIZENTRA [Suspect]
     Active Substance: HUMAN IMMUNOGLOBULIN G
     Indication: NEUROPATHY PERIPHERAL
     Dosage: 38 G, QW
     Route: 058
     Dates: start: 20170829
  21. PREMARIN [Concomitant]
     Active Substance: ESTROGENS, CONJUGATED
  22. FLUTICASONE. [Concomitant]
     Active Substance: FLUTICASONE
  23. ASPIRIN. [Concomitant]
     Active Substance: ASPIRIN
  24. ALBUTEROL                          /00139501/ [Concomitant]
     Active Substance: ALBUTEROL
  25. CYCLOBENZAPRINE. [Concomitant]
     Active Substance: CYCLOBENZAPRINE
  26. IBUPROFEN. [Concomitant]
     Active Substance: IBUPROFEN

REACTIONS (6)
  - Chest discomfort [Unknown]
  - Injection site warmth [Unknown]
  - Pruritus [Unknown]
  - Rash [Unknown]
  - Headache [Unknown]
  - Swelling face [Unknown]

NARRATIVE: CASE EVENT DATE: 20171003
